FAERS Safety Report 9715302 (Version 1)
Quarter: 2013Q4

REPORT INFORMATION
  Report Type: Spontaneous
  Country: US (occurrence: US)
  Receive Date: 20131127
  Receipt Date: 20131127
  Transmission Date: 20140711
  Serious: Yes (Death)
  Sender: FDA-Public Use
  Company Number: US-INDICUS PHARMA-000142

PATIENT
  Age: 37 Year
  Sex: Female

DRUGS (12)
  1. METFORMIN HYDROCHLORIDE [Suspect]
  2. PREDNISONE [Suspect]
  3. OXCARBAZEPINE [Suspect]
  4. GEMFIBROZIL [Suspect]
  5. BUPROPION [Suspect]
     Dosage: EXTENDED RELEASE
  6. DULOXETINE [Suspect]
  7. LEVOTHYROXINE [Suspect]
  8. ARIPIPRAZOLE [Suspect]
  9. SIMVASTATIN [Suspect]
  10. CLONAZEPAM [Suspect]
  11. TOPIRAMATE [Suspect]
  12. RANITIDINE [Suspect]

REACTIONS (3)
  - Completed suicide [Fatal]
  - Cardio-respiratory arrest [Fatal]
  - Exposure via ingestion [Fatal]
